FAERS Safety Report 11202117 (Version 1)
Quarter: 2015Q2

REPORT INFORMATION
  Report Type: Spontaneous
  Country: US (occurrence: US)
  Receive Date: 20150619
  Receipt Date: 20150619
  Transmission Date: 20150821
  Serious: Yes (Hospitalization)
  Sender: FDA-Public Use
  Company Number: PHEH2015US011421

PATIENT
  Age: 55 Year
  Sex: Female

DRUGS (6)
  1. PREDNISONE. [Concomitant]
     Active Substance: PREDNISONE
     Indication: PRODUCT USED FOR UNKNOWN INDICATION
     Route: 065
  2. ATENOLOL. [Concomitant]
     Active Substance: ATENOLOL
     Indication: PRODUCT USED FOR UNKNOWN INDICATION
     Route: 065
  3. TEGRETOL [Suspect]
     Active Substance: CARBAMAZEPINE
     Indication: PRODUCT USED FOR UNKNOWN INDICATION
     Dosage: UNK
     Route: 065
     Dates: end: 201403
  4. LAMICTAL [Suspect]
     Active Substance: LAMOTRIGINE
     Dosage: 500 MG, QD (200 MG IN MORNING AND 300 MG IN EVENING)
     Route: 065
     Dates: start: 201403
  5. KEPPRA [Suspect]
     Active Substance: LEVETIRACETAM
     Indication: SLUGGISHNESS
     Dosage: UNK
     Route: 065
     Dates: end: 20140926
  6. LAMICTAL [Suspect]
     Active Substance: LAMOTRIGINE
     Indication: EPILEPSY
     Dosage: UNK
     Route: 065
     Dates: start: 201304

REACTIONS (9)
  - Hostility [Unknown]
  - Hallucination, auditory [Recovering/Resolving]
  - Incorrect dose administered [Unknown]
  - Panic attack [Recovering/Resolving]
  - Aggression [Unknown]
  - Urinary tract infection [Recovering/Resolving]
  - Abnormal behaviour [Recovering/Resolving]
  - Sluggishness [Unknown]
  - Suicidal ideation [Unknown]

NARRATIVE: CASE EVENT DATE: 20140622
